FAERS Safety Report 5517144-3 (Version None)
Quarter: 2007Q4

REPORT INFORMATION
  Report Type: 
  Country: None (occurrence: None)
  Receive Date: 20071114
  Receipt Date: 20071107
  Transmission Date: 20080405
  Serious: Yes (Hospitalization)
  Sender: FDA-Public Use
  Company Number: B0493906A

PATIENT
  Age: 73 Year
  Sex: Female
  Weight: 49 kg

DRUGS (5)
  1. VALTREX [Suspect]
     Indication: HERPES ZOSTER
     Dosage: 1000MG THREE TIMES PER DAY
     Route: 048
     Dates: start: 20071013, end: 20071016
  2. NU-LOTAN [Concomitant]
     Route: 048
  3. SIMVASTATIN [Concomitant]
     Route: 048
  4. CRAVIT [Concomitant]
     Route: 048
     Dates: start: 20071010
  5. CELESTAMINE TAB [Concomitant]
     Route: 048
     Dates: start: 20071010

REACTIONS (3)
  - ANOREXIA [None]
  - MALAISE [None]
  - RENAL FAILURE ACUTE [None]
